FAERS Safety Report 18741711 (Version 1)
Quarter: 2021Q1

REPORT INFORMATION
  Report Type: Spontaneous
  Country: US (occurrence: US)
  Receive Date: 20210114
  Receipt Date: 20210114
  Transmission Date: 20210419
  Serious: Yes (Other)
  Sender: FDA-Public Use
  Company Number: US-SUN PHARMACEUTICAL INDUSTRIES LTD-2020R1-275067

PATIENT
  Age: 61 Year
  Sex: Female

DRUGS (1)
  1. PREDNISONE. [Suspect]
     Active Substance: PREDNISONE
     Indication: STEROID THERAPY
     Dosage: 1 MILLIGRAM/KILOGRAM, DAILY
     Route: 065

REACTIONS (1)
  - Nephrotic syndrome [Recovering/Resolving]
